FAERS Safety Report 5642611-1 (Version None)
Quarter: 2008Q1

REPORT INFORMATION
  Report Type: 
  Country: None (occurrence: None)
  Receive Date: 20080227
  Receipt Date: 20080227
  Transmission Date: 20080703
  Serious: Yes (Hospitalization)
  Sender: FDA-Public Use
  Company Number: None

PATIENT
  Sex: Male
  Weight: 105.2345 kg

DRUGS (14)
  1. AMARYL [Suspect]
     Indication: DIABETES MELLITUS
     Dosage: 2MG PO BID  (THERAPY DATES: PRIOR TO ADMISSION)
     Route: 048
  2. ASPIRIN [Concomitant]
  3. METOPROLOL TARTRATE [Concomitant]
  4. DIGOXIN [Concomitant]
  5. NEXIUM [Concomitant]
  6. PERCOCET [Concomitant]
  7. AMIODARONE HCL [Concomitant]
  8. CRESTOR [Concomitant]
  9. KEFLEX [Concomitant]
  10. METFORMN [Concomitant]
  11. JANUVIA [Concomitant]
  12. CAPTOPRIL [Concomitant]
  13. COUMADIN [Concomitant]
  14. ANTARA [Concomitant]

REACTIONS (4)
  - CONVULSION [None]
  - HYPOGLYCAEMIA [None]
  - LOSS OF CONSCIOUSNESS [None]
  - MENTAL STATUS CHANGES [None]
